FAERS Safety Report 9103621 (Version 1)
Quarter: 2013Q1

REPORT INFORMATION
  Report Type: Spontaneous
  Country: NO (occurrence: NO)
  Receive Date: 20130219
  Receipt Date: 20130219
  Transmission Date: 20140127
  Serious: Yes (Disabling)
  Sender: FDA-Public Use
  Company Number: NO-GLAXOSMITHKLINE-B0868233A

PATIENT
  Age: 4 Year
  Sex: Male

DRUGS (1)
  1. FLUTIDE [Suspect]
     Indication: ASTHMA
     Dosage: 100MCG TWICE PER DAY
     Route: 055
     Dates: start: 2009, end: 2011

REACTIONS (1)
  - Cataract [Not Recovered/Not Resolved]
